FAERS Safety Report 6690458-X (Version None)
Quarter: 2010Q2

REPORT INFORMATION
  Report Type: 
  Country: None (occurrence: None)
  Receive Date: 20100421
  Receipt Date: 20100413
  Transmission Date: 20101027
  Serious: Yes (Hospitalization)
  Sender: FDA-Public Use
  Company Number: JP-JNJCH-2010008980

PATIENT
  Sex: Male

DRUGS (1)
  1. MINOXIDIL [Suspect]
     Indication: ANDROGENETIC ALOPECIA
     Dosage: TEXT:1ML X2
     Route: 061
     Dates: start: 20091220, end: 20100301

REACTIONS (3)
  - ASTHMA [None]
  - CARDIAC FAILURE [None]
  - HEART RATE INCREASED [None]
